FAERS Safety Report 24568438 (Version 1)
Quarter: 2024Q4

REPORT INFORMATION
  Report Type: Spontaneous
  Country: GB (occurrence: GB)
  Receive Date: 20241031
  Receipt Date: 20241031
  Transmission Date: 20250114
  Serious: Yes (Other)
  Sender: MYLAN
  Company Number: GB-MYLANLABS-2024M1084955

PATIENT
  Age: 27 Year
  Sex: Male
  Weight: 68.2 kg

DRUGS (5)
  1. CLOZARIL [Suspect]
     Active Substance: CLOZAPINE
     Indication: Schizophrenia
     Dosage: BID (TWICE DAILY, 100MG MANE 300MG NOCTE)
     Route: 048
     Dates: start: 20010701
  2. FLUOXETINE [Concomitant]
     Active Substance: FLUOXETINE HYDROCHLORIDE
     Dosage: 40 MILLIGRAM, QD (OD)
     Route: 065
  3. VALPROATE SODIUM [Concomitant]
     Active Substance: VALPROATE SODIUM
     Dosage: 200 MILLIGRAM, BID (BD)
     Route: 065
  4. EASYHALER BUDESONIDE [Concomitant]
     Dosage: 200 MICROGRAM, BID (1 DOSE TWICE DAILY) (DRY POWDER INHALER)
     Route: 065
  5. EASYHALER SALBUTAMOL [Concomitant]
     Indication: Dyspnoea
     Dosage: 2 DOSAGE FORM, PRN (TWO PUFFS WHEN REQUIRED)
     Route: 065

REACTIONS (2)
  - Thrombocytopenia [Recovering/Resolving]
  - Off label use [Unknown]

NARRATIVE: CASE EVENT DATE: 20010701
